FAERS Safety Report 14564061 (Version 1)
Quarter: 2018Q1

REPORT INFORMATION
  Report Type: Spontaneous
  Country: US (occurrence: US)
  Receive Date: 20180222
  Receipt Date: 20180222
  Transmission Date: 20180509
  Serious: No
  Sender: FDA-Public Use
  Company Number: US-009507513-1802USA010004

PATIENT
  Sex: Female
  Weight: 55.78 kg

DRUGS (1)
  1. NEXPLANON [Suspect]
     Active Substance: ETONOGESTREL
     Indication: CONTRACEPTION
     Dosage: 1 IMPLANT, FOR 4 YEARS, LEFT ARM
     Route: 059

REACTIONS (4)
  - Weight increased [Unknown]
  - Inappropriate schedule of drug administration [Unknown]
  - Breast discharge [Unknown]
  - Metrorrhagia [Unknown]
